FAERS Safety Report 5152611-6 (Version None)
Quarter: 2006Q4

REPORT INFORMATION
  Report Type: 
  Country: None (occurrence: None)
  Receive Date: 20061109
  Receipt Date: 20061024
  Transmission Date: 20070319
  Serious: Yes (Death)
  Sender: FDA-Public Use
  Company Number: DSA_61264_2006

PATIENT

DRUGS (3)
  1. DIAZEPAM [Suspect]
     Dosage: DF
  2. METHADONE HCL [Suspect]
     Dosage: DF
  3. COCAINE [Suspect]
     Dosage: DF

REACTIONS (2)
  - COMPLETED SUICIDE [None]
  - INCORRECT ROUTE OF DRUG ADMINISTRATION [None]
